FAERS Safety Report 9339535 (Version 2)
Quarter: 2013Q2

REPORT INFORMATION
  Report Type: Spontaneous
  Country: US (occurrence: None)
  Receive Date: 20130610
  Receipt Date: 20130619
  Transmission Date: 20140414
  Serious: Yes (Hospitalization)
  Sender: FDA-Public Use
  Company Number: None

PATIENT
  Age: 69 Year
  Sex: Female

DRUGS (2)
  1. TRIAMCINOLONE [Suspect]
  2. LIDOCAINE [Suspect]

REACTIONS (2)
  - Arthritis bacterial [None]
  - Infection [None]
